FAERS Safety Report 8860398 (Version 1)
Quarter: 2012Q4

REPORT INFORMATION
  Report Type: 
  Country: GB (occurrence: GB)
  Receive Date: 20121025
  Receipt Date: 20121025
  Transmission Date: 20130627
  Serious: Yes (Hospitalization)
  Sender: FDA-Public Use
  Company Number: GB-ACCORD-014999

PATIENT
  Age: 81 Year
  Sex: Female
  Weight: 65.5 kg

DRUGS (10)
  1. ATENOLOL [Concomitant]
  2. ASPIRIN [Concomitant]
  3. IBUPROFEN [Suspect]
     Indication: PAIN
     Dosage: take when required
     Route: 048
     Dates: start: 20120801, end: 20120804
  4. PARACETAMOL [Concomitant]
  5. PERINDOPRIL [Concomitant]
     Dates: start: 20120727
  6. SALBUTAMOL [Concomitant]
  7. ZOPICLONE [Concomitant]
  8. AMLODIPINE [Concomitant]
  9. GLIMEPIRIDE [Suspect]
     Indication: TYPE 2 DIABETES MELLITUS
     Route: 048
     Dates: end: 20120813
  10. SIMVASTATIN [Concomitant]

REACTIONS (5)
  - Hypoglycaemia [Recovered/Resolved]
  - Tubulointerstitial nephritis [Recovering/Resolving]
  - Somnolence [Recovered/Resolved]
  - Unresponsive to stimuli [Recovered/Resolved]
  - Nausea [Unknown]
